FAERS Safety Report 5871059-X (Version None)
Quarter: 2008Q3

REPORT INFORMATION
  Report Type: 
  Country: None (occurrence: None)
  Receive Date: 20080904
  Receipt Date: 20080814
  Transmission Date: 20090109
  Serious: Yes (Life-Threatening, Hospitalization)
  Sender: FDA-Public Use
  Company Number: US-GENENTECH-233178

PATIENT
  Sex: Female
  Weight: 84.353 kg

DRUGS (12)
  1. OMALIZUMAB [Suspect]
     Indication: ASTHMA
     Dosage: 375 MG, Q2W
     Dates: end: 20070215
  2. ALLEGRA-D [Concomitant]
     Indication: HYPERSENSITIVITY
  3. SYMBICORT [Concomitant]
     Indication: ASTHMA
  4. IMMUNOTHERAPY (ANTIGEN UNKNOWN) [Concomitant]
     Indication: HYPERSENSITIVITY
  5. PULMICORT-100 [Concomitant]
     Indication: ASTHMA
  6. ADVAIR DISKUS 100/50 [Concomitant]
     Indication: ASTHMA
  7. SINGULAIR [Concomitant]
     Indication: ASTHMA
  8. ALBUTEROL [Concomitant]
     Indication: ASTHMA
  9. ASCORBIC ACID [Concomitant]
     Indication: DRUG USE FOR UNKNOWN INDICATION
  10. FOLIC ACID [Concomitant]
     Indication: DRUG USE FOR UNKNOWN INDICATION
  11. CALCIUM [Concomitant]
     Indication: DRUG USE FOR UNKNOWN INDICATION
  12. OPTINATE SEPTIMUM [Concomitant]
     Indication: DRUG USE FOR UNKNOWN INDICATION

REACTIONS (2)
  - COMPLICATION OF DELIVERY [None]
  - DRUG EXPOSURE DURING PREGNANCY [None]
